FAERS Safety Report 13095119 (Version 1)
Quarter: 2017Q1

REPORT INFORMATION
  Report Type: Other
  Country: PT (occurrence: PT)
  Receive Date: 20170107
  Receipt Date: 20170107
  Transmission Date: 20170428
  Serious: Yes (Other)
  Sender: FDA-Public Use
  Company Number: PT-GRANULES INDIA LIMITED-1061691

PATIENT
  Age: 48 Year
  Sex: Female

DRUGS (4)
  1. HYDROXYCHLOROQUINE SULFATE. [Suspect]
     Active Substance: HYDROXYCHLOROQUINE SULFATE
  2. DEFLAZACORT [Suspect]
     Active Substance: DEFLAZACORT
  3. NAPROXEN SODIUM. [Suspect]
     Active Substance: NAPROXEN SODIUM
     Indication: PRODUCT USED FOR UNKNOWN INDICATION
  4. ACETYLSALICYLIC ACID [Suspect]
     Active Substance: ASPIRIN

REACTIONS (5)
  - Systemic lupus erythematosus [Unknown]
  - Autoimmune hepatitis [Unknown]
  - Decreased appetite [Unknown]
  - Hyperbilirubinaemia [Unknown]
  - Nausea [Unknown]
